FAERS Safety Report 5685169-3 (Version None)
Quarter: 2008Q1

REPORT INFORMATION
  Report Type: 
  Country: None (occurrence: None)
  Receive Date: 20080328
  Receipt Date: 20080318
  Transmission Date: 20080703
  Serious: Yes (Other)
  Sender: FDA-Public Use
  Company Number: US-PFIZER INC-2007067664

PATIENT
  Age: 69 Year
  Sex: Male

DRUGS (4)
  1. SERTRALINE [Interacting]
     Indication: MAJOR DEPRESSION
     Dosage: DAILY DOSE:150MG
  2. TRAZODONE HCL [Suspect]
     Indication: INSOMNIA
     Dosage: DAILY DOSE:50MG-TEXT:AT BEDTIME
  3. RISPERIDONE [Interacting]
     Indication: MAJOR DEPRESSION
     Dosage: DAILY DOSE:3MG
  4. METOPROLOL TARTRATE [Concomitant]
     Dosage: DAILY DOSE:200MG

REACTIONS (2)
  - DRUG INTERACTION [None]
  - SEROTONIN SYNDROME [None]
